FAERS Safety Report 17420847 (Version 3)
Quarter: 2020Q1

REPORT INFORMATION
  Report Type: Spontaneous
  Country: US (occurrence: US)
  Receive Date: 20200214
  Receipt Date: 20200305
  Transmission Date: 20200409
  Serious: No
  Sender: FDA-Public Use
  Company Number: US-PFIZER INC-2020066731

PATIENT
  Age: 43 Year
  Sex: Male
  Weight: 95 kg

DRUGS (3)
  1. PREGABALIN. [Suspect]
     Active Substance: PREGABALIN
     Dosage: 675 MG, DAILY (225 MG ONE IN THE MORNING AND IN THE NIGHT)
     Route: 048
     Dates: start: 2020, end: 2020
  2. PREGABALIN. [Suspect]
     Active Substance: PREGABALIN
     Indication: NEUROPATHY PERIPHERAL
     Dosage: 225 MG, 2X/DAY (ONE 225MG CAPSULE ONCE IN THE MORNING, AND ONE AT NIGHT)
     Route: 048
     Dates: start: 202001, end: 2020
  3. PREGABALIN. [Suspect]
     Active Substance: PREGABALIN
     Dosage: 225 MG, 2X/DAY (ONE 225MG CAPSULE ONCE IN THE MORNING, AND ONE AT NIGHT)
     Route: 048
     Dates: start: 2020

REACTIONS (2)
  - Therapeutic product effect incomplete [Unknown]
  - Intentional overdose [Unknown]
